FAERS Safety Report 5306545-4 (Version None)
Quarter: 2007Q2

REPORT INFORMATION
  Report Type: 
  Country: None (occurrence: None)
  Receive Date: 20070424
  Receipt Date: 20070412
  Transmission Date: 20071010
  Serious: Yes (Other)
  Sender: FDA-Public Use
  Company Number: US-PFIZER INC-2006132924

PATIENT
  Sex: Male

DRUGS (3)
  1. DILANTIN [Interacting]
     Dosage: DAILY DOSE:500MG
  2. LYRICA [Suspect]
     Indication: CONVULSION
  3. LYRICA [Suspect]
     Indication: DRUG EFFECT INCREASED

REACTIONS (3)
  - ANTICONVULSANT DRUG LEVEL INCREASED [None]
  - CONVULSION [None]
  - DRUG INTERACTION [None]
